FAERS Safety Report 8242511-7 (Version None)
Quarter: 2012Q1

REPORT INFORMATION
  Report Type: 
  Country: None (occurrence: None)
  Receive Date: 20120329
  Receipt Date: 20120322
  Transmission Date: 20120608
  Serious: Yes (Hospitalization)
  Sender: FDA-Public Use
  Company Number: FR-SANOFI-AVENTIS-2012SA019842

PATIENT
  Age: 31 Year
  Sex: Male

DRUGS (5)
  1. MABTHERA [Suspect]
     Indication: POLYMYOSITIS
     Dosage: FORM: SOLUTION FOR PERFUSION
     Route: 042
     Dates: start: 20090901
  2. PLAQUENIL [Suspect]
     Indication: POLYMYOSITIS
     Route: 048
     Dates: start: 20090901
  3. MABTHERA [Suspect]
     Route: 065
     Dates: start: 20100401
  4. MABTHERA [Suspect]
     Route: 065
     Dates: start: 20110701
  5. METHOTREXATE [Suspect]
     Indication: POLYMYOSITIS
     Route: 048

REACTIONS (3)
  - NEUROPATHY PERIPHERAL [None]
  - OFF LABEL USE [None]
  - PERIPHERAL PARALYSIS [None]
